FAERS Safety Report 4525570-4 (Version None)
Quarter: 2004Q4

REPORT INFORMATION
  Report Type: 
  Country: None (occurrence: None)
  Receive Date: 20041116
  Receipt Date: 20041004
  Transmission Date: 20050328
  Serious: No
  Sender: FDA-Public Use
  Company Number: S04-USA-06445-01

PATIENT
  Age: 40 Year
  Sex: Male

DRUGS (5)
  1. NAMENDA [Suspect]
     Indication: DEMENTIA
     Dosage: 5 MG QD PO
     Route: 048
     Dates: start: 20040928
  2. EFFEXOR [Concomitant]
  3. RISPERDAL [Concomitant]
  4. COGENTIN [Concomitant]
  5. VASOTEC [Concomitant]

REACTIONS (1)
  - CONFUSIONAL STATE [None]
